FAERS Safety Report 19425874 (Version 2)
Quarter: 2021Q3

REPORT INFORMATION
  Report Type: Report from Study
  Country: BR (occurrence: BR)
  Receive Date: 20210616
  Receipt Date: 20210730
  Transmission Date: 20211014
  Serious: Yes (Other)
  Sender: FDA-Public Use
  Company Number: NVSC2021BR133129

PATIENT
  Age: 65 Year
  Sex: Male
  Weight: 77 kg

DRUGS (3)
  1. GALVUS MET [Suspect]
     Active Substance: METFORMIN HYDROCHLORIDE\VILDAGLIPTIN
     Indication: DIABETES MELLITUS
     Dosage: 1 DF, Q12H
     Route: 048
     Dates: start: 2012
  2. INSULIN [Concomitant]
     Active Substance: INSULIN NOS
     Indication: DIABETES MELLITUS
     Dosage: 1 DF, BID (1 APPLICATION OF 20 AND 1 APPLICATION OF 15, 1 AT MORNING AND 1 AT NIGHT)
     Route: 058
     Dates: start: 202107
  3. GLIBENCLAMIDE [Concomitant]
     Active Substance: GLYBURIDE
     Indication: DIABETES MELLITUS
     Dosage: 1 DF, Q12H
     Route: 048
     Dates: start: 2012

REACTIONS (11)
  - Cerebrovascular accident [Recovered/Resolved]
  - Hypertension [Not Recovered/Not Resolved]
  - Cerebrovascular accident [Recovered/Resolved]
  - Nervousness [Recovered/Resolved]
  - Anger [Recovered/Resolved]
  - Visual impairment [Recovered/Resolved]
  - Malaise [Recovered/Resolved]
  - Hypertension [Recovered/Resolved]
  - Hyperhidrosis [Recovered/Resolved]
  - Illness [Unknown]
  - Blood pressure fluctuation [Recovered/Resolved]

NARRATIVE: CASE EVENT DATE: 202012
